FAERS Safety Report 19624520 (Version 1)
Quarter: 2021Q3

REPORT INFORMATION
  Report Type: Report from Study
  Country: US (occurrence: US)
  Receive Date: 20210728
  Receipt Date: 20210728
  Transmission Date: 20211014
  Serious: Yes (Life-Threatening, Hospitalization)
  Sender: FDA-Public Use
  Company Number: US-MYLANLABS-2021M1045935

PATIENT
  Sex: Female

DRUGS (1)
  1. APIXABAN [Suspect]
     Active Substance: APIXABAN
     Indication: THROMBOSIS PROPHYLAXIS
     Dosage: 2.5 MILLIGRAM
     Route: 048

REACTIONS (4)
  - Gastrointestinal haemorrhage [Unknown]
  - Acute myocardial infarction [Unknown]
  - Cardiac failure acute [Unknown]
  - Condition aggravated [Unknown]
